FAERS Safety Report 15110062 (Version 2)
Quarter: 2019Q2

REPORT INFORMATION
  Report Type: Spontaneous
  Country: US (occurrence: US)
  Receive Date: 20180705
  Receipt Date: 20190422
  Transmission Date: 20190711
  Serious: No
  Sender: FDA-Public Use
  Company Number: US-PFIZER INC-2018271547

PATIENT
  Age: 53 Year
  Sex: Female

DRUGS (4)
  1. HYDROXYZINE [Concomitant]
     Active Substance: HYDROXYZINE HYDROCHLORIDE
     Dosage: 50 MG, 1X/DAY
     Dates: start: 2016
  2. EUCRISA [Suspect]
     Active Substance: CRISABOROLE
     Indication: DERMATITIS ATOPIC
     Dosage: UNK UNK, 2X/DAY, (APPLY ON AFFECTED SKIN TWO TIMES A DAY)
     Route: 061
     Dates: start: 2017, end: 2018
  3. EUCRISA [Suspect]
     Active Substance: CRISABOROLE
     Indication: ECZEMA
  4. RANITIDINE. [Concomitant]
     Active Substance: RANITIDINE
     Dosage: 150 MG, 2X/DAY
     Dates: start: 2016

REACTIONS (1)
  - Therapeutic product effect incomplete [Recovered/Resolved]

NARRATIVE: CASE EVENT DATE: 2017
